FAERS Safety Report 23593767 (Version 1)
Quarter: 2024Q1

REPORT INFORMATION
  Report Type: Report from Study
  Country: US (occurrence: US)
  Receive Date: 20240304
  Receipt Date: 20240304
  Transmission Date: 20240410
  Serious: Yes (Hospitalization)
  Sender: FDA-Public Use
  Company Number: US-ABBVIE-5546317

PATIENT
  Age: 88 Year
  Sex: Female

DRUGS (1)
  1. IMBRUVICA [Suspect]
     Active Substance: IBRUTINIB
     Indication: Chronic lymphocytic leukaemia
     Route: 048
     Dates: start: 20150730

REACTIONS (5)
  - Hypertensive crisis [Recovering/Resolving]
  - Arthralgia [Unknown]
  - Diverticulitis [Recovering/Resolving]
  - Visual impairment [Unknown]
  - Bone pain [Unknown]

NARRATIVE: CASE EVENT DATE: 20231121
